FAERS Safety Report 21989007 (Version 2)
Quarter: 2023Q1

REPORT INFORMATION
  Report Type: Spontaneous
  Country: FR (occurrence: None)
  Receive Date: 20230214
  Receipt Date: 20230223
  Transmission Date: 20230418
  Serious: Yes (Other)
  Sender: FDA-Public Use
  Company Number: FR-ROCHE-3280321

PATIENT
  Sex: Female

DRUGS (2)
  1. HERCEPTIN [Suspect]
     Active Substance: TRASTUZUMAB
     Indication: Breast cancer
     Dosage: 16 CYCLES OF HERCEPTIN
     Route: 065
     Dates: start: 2018
  2. TAXOL [Concomitant]
     Active Substance: PACLITAXEL
     Indication: Breast cancer
     Dates: start: 2018

REACTIONS (4)
  - Liver injury [Unknown]
  - Osteoporosis [Unknown]
  - Cataract [Unknown]
  - Fatigue [Unknown]
